FAERS Safety Report 23318636 (Version 4)
Quarter: 2024Q1

REPORT INFORMATION
  Report Type: Spontaneous
  Country: US (occurrence: US)
  Receive Date: 20231220
  Receipt Date: 20240320
  Transmission Date: 20240410
  Serious: No
  Sender: FDA-Public Use
  Company Number: US-BIOGEN-2022BI01176576

PATIENT
  Sex: Female

DRUGS (17)
  1. VUMERITY [Suspect]
     Active Substance: DIROXIMEL FUMARATE
     Indication: Multiple sclerosis
     Route: 050
     Dates: start: 20220713
  2. CLOPIDOGREL [Suspect]
     Active Substance: CLOPIDOGREL BISULFATE
     Indication: Product used for unknown indication
     Route: 050
  3. PRIMIDONE [Concomitant]
     Active Substance: PRIMIDONE
     Route: 050
  4. ROSUVASTATIN CALCIUM [Concomitant]
     Active Substance: ROSUVASTATIN CALCIUM
     Route: 050
  5. LACOSAMIDE [Concomitant]
     Active Substance: LACOSAMIDE
     Route: 050
  6. CLOBAZAM [Concomitant]
     Active Substance: CLOBAZAM
     Route: 050
  7. VITAMIN D3 [Concomitant]
     Active Substance: CHOLECALCIFEROL
     Route: 050
  8. VITAMIN C [Concomitant]
     Active Substance: ASCORBIC ACID
     Route: 050
  9. MAGNESIUM [Concomitant]
     Active Substance: MAGNESIUM
     Route: 050
  10. VITAMIN B COMPLEX [Concomitant]
     Active Substance: CYANOCOBALAMIN\DEXPANTHENOL\NIACINAMIDE\PYRIDOXINE HYDROCHLORIDE\RIBOFLAVIN 5^-PHOSPHATE SODIUM\THIA
     Route: 050
  11. OMEGA 3 [Concomitant]
     Active Substance: CAPSAICIN
     Route: 050
  12. ZINC [Concomitant]
     Active Substance: PYRITHIONE ZINC\ZINC\ZINC CHLORIDE
     Route: 050
  13. QUETIAPINE FUMARATE [Concomitant]
     Active Substance: QUETIAPINE FUMARATE
     Route: 050
  14. SELENIUM [Concomitant]
     Active Substance: SELENIUM
     Route: 050
  15. ALBUTEROL [Concomitant]
     Active Substance: ALBUTEROL
     Route: 050
  16. MELATONIN [Concomitant]
     Active Substance: MELATONIN
     Route: 050
  17. METOPROLOL [Concomitant]
     Active Substance: METOPROLOL
     Dosage: TITRATING OFF METOPROLOL (25MG TO 12.5MG TO DISCONTINUE)
     Route: 050

REACTIONS (8)
  - Intentional product misuse [Unknown]
  - Musculoskeletal disorder [Not Recovered/Not Resolved]
  - Muscle spasms [Unknown]
  - Fatigue [Unknown]
  - Hypoaesthesia [Unknown]
  - Anaemia [Recovered/Resolved]
  - Hyponatraemia [Recovered/Resolved]
  - Contusion [Unknown]

NARRATIVE: CASE EVENT DATE: 20220101
